FAERS Safety Report 6560595-9 (Version None)
Quarter: 2010Q1

REPORT INFORMATION
  Report Type: 
  Country: None (occurrence: None)
  Receive Date: 20100129
  Receipt Date: 20090921
  Transmission Date: 20100710
  Serious: No
  Sender: FDA-Public Use
  Company Number: US-ABBOTT-09P-163-0598533-00

PATIENT
  Sex: Female
  Weight: 51.756 kg

DRUGS (7)
  1. HUMIRA [Suspect]
     Indication: PSORIATIC ARTHROPATHY
     Dates: start: 20090601
  2. METHOTREXATE [Concomitant]
     Indication: PSORIATIC ARTHROPATHY
  3. SALSALATE [Concomitant]
     Indication: INFLAMMATION
  4. ULTRAM [Concomitant]
     Indication: PAIN
  5. EFFEXOR [Concomitant]
     Indication: DEPRESSION
  6. BUSPIRONE HCL [Concomitant]
     Indication: ANXIETY
  7. UNKNOWN CREAMS [Concomitant]
     Indication: PSORIATIC ARTHROPATHY

REACTIONS (4)
  - INJECTION SITE ERYTHEMA [None]
  - INJECTION SITE PAIN [None]
  - INJECTION SITE PRURITUS [None]
  - INJECTION SITE WARMTH [None]
